FAERS Safety Report 8382660-6 (Version None)
Quarter: 2012Q1

REPORT INFORMATION
  Report Type: 
  Country: None (occurrence: None)
  Receive Date: 20120323
  Receipt Date: 20110509
  Transmission Date: 20120608
  Serious: Yes (Other)
  Sender: FDA-Public Use
  Company Number: 163-21880-11051556

PATIENT
  Age: 78 Year
  Sex: Male
  Weight: 73.5 kg

DRUGS (1)
  1. REVLIMID [Suspect]
     Indication: MULTIPLE MYELOMA
     Dosage: 25 MG, AT BEDTIME ON DAYS 1-21 Q 28 DAYS, PO
     Route: 048
     Dates: start: 20110223

REACTIONS (1)
  - ANAEMIA [None]
